FAERS Safety Report 19393505 (Version 4)
Quarter: 2021Q3

REPORT INFORMATION
  Report Type: Report from Study
  Country: GB (occurrence: GB)
  Receive Date: 20210609
  Receipt Date: 20210729
  Transmission Date: 20211014
  Serious: Yes (Hospitalization)
  Sender: FDA-Public Use
  Company Number: GB-ROCHE-1226880

PATIENT
  Age: 50 Year
  Sex: Female

DRUGS (44)
  1. GELCLAIR (UNITED KINGDOM) [Concomitant]
     Dates: start: 20130719
  2. THYROXINE [Concomitant]
     Active Substance: LEVOTHYROXINE
     Dates: start: 200110, end: 20130621
  3. BISACODYL. [Concomitant]
     Active Substance: BISACODYL
  4. OSELTAMIVIR [Concomitant]
     Active Substance: OSELTAMIVIR
  5. TRASTUZUMAB. [Suspect]
     Active Substance: TRASTUZUMAB
     Indication: HER2 POSITIVE BREAST CANCER
     Route: 065
     Dates: start: 20130612
  6. LOPERAMIDE [Concomitant]
     Active Substance: LOPERAMIDE
     Dates: start: 20130729
  7. ESTRADERM [Concomitant]
     Active Substance: ESTRADIOL
  8. GELCLAIR (UNITED KINGDOM) [Concomitant]
     Route: 065
     Dates: start: 20130516
  9. CHLORPHENAMINE [Concomitant]
     Active Substance: CHLORPHENIRAMINE MALEATE
  10. LAXIDO [Concomitant]
     Active Substance: POLYETHYLENE GLYCOL 3350\POTASSIUM CHLORIDE\SODIUM BICARBONATE\SODIUM CHLORIDE
  11. PERTUZUMAB. [Suspect]
     Active Substance: PERTUZUMAB
     Indication: HER2 POSITIVE BREAST CANCER
     Dosage: ON 06/JUN/2013,  SHE RECEIVED THE DOSE OF PERTUZUMAB PRIOR TO THE EVENT.?ON 27/JUN/2013, THE THERAPY
     Route: 042
     Dates: start: 20130516
  12. TRASTUZUMAB. [Suspect]
     Active Substance: TRASTUZUMAB
     Indication: HER2 POSITIVE BREAST CANCER
     Dosage: DOSE: 8 MG/KG?LAST DOSE PRIOR TO FIRST SAE: 16/MAY/2013?LOADING DOSE?ON 27/JUN/2013, SHE RECEIVED TR
     Route: 042
     Dates: start: 20130516
  13. TRASTUZUMAB. [Suspect]
     Active Substance: TRASTUZUMAB
     Route: 042
     Dates: start: 20130711
  14. DEXAMETHASONE. [Concomitant]
     Active Substance: DEXAMETHASONE
     Dates: start: 20130511, end: 20130517
  15. MST [MORPHINE SULFATE] [Concomitant]
     Active Substance: MORPHINE SULFATE
     Dates: start: 201304
  16. SEVREDOL [Concomitant]
     Active Substance: MORPHINE
     Dates: start: 201304
  17. PACLITAXEL. [Suspect]
     Active Substance: PACLITAXEL
     Indication: HER2 POSITIVE BREAST CANCER
     Dosage: ON 12/JUN/2013, SHE RECEIVED TRASTUZUMAB PRIOR TO EVENT.?ON 19/JUN/2013, THERAPY WITH TRASTUZUMAB WA
     Route: 042
     Dates: start: 20130522
  18. PACLITAXEL. [Suspect]
     Active Substance: PACLITAXEL
     Route: 042
     Dates: start: 20130711
  19. DEXAMETHASONE. [Concomitant]
     Active Substance: DEXAMETHASONE
     Dates: start: 20130505, end: 20130510
  20. DEXAMETHASONE. [Concomitant]
     Active Substance: DEXAMETHASONE
     Dates: start: 20130520, end: 20130521
  21. FUROSEMIDE. [Concomitant]
     Active Substance: FUROSEMIDE
     Dates: start: 20130516, end: 20130519
  22. LYRICA [Concomitant]
     Active Substance: PREGABALIN
     Dates: start: 201304
  23. TRASTUZUMAB. [Suspect]
     Active Substance: TRASTUZUMAB
     Route: 042
     Dates: start: 20130606
  24. DEXAMETHASONE. [Concomitant]
     Active Substance: DEXAMETHASONE
     Dates: start: 20130511, end: 20130517
  25. DICLOFENAC [Concomitant]
     Active Substance: DICLOFENAC
     Dates: start: 201301
  26. FUROSEMIDE. [Concomitant]
     Active Substance: FUROSEMIDE
     Dates: start: 20130613, end: 20130618
  27. LOPERAMIDE [Concomitant]
     Active Substance: LOPERAMIDE
     Dates: start: 20130523, end: 20130526
  28. PARACETAMOL [Concomitant]
     Active Substance: ACETAMINOPHEN
     Dates: start: 201303
  29. IMODIUM [Concomitant]
     Active Substance: LOPERAMIDE HYDROCHLORIDE
  30. KETAMINE [Concomitant]
     Active Substance: KETAMINE
  31. DEXAMETHASONE. [Concomitant]
     Active Substance: DEXAMETHASONE
     Dates: start: 20130521, end: 20130524
  32. FUROSEMIDE. [Concomitant]
     Active Substance: FUROSEMIDE
     Dates: start: 20130524, end: 20130528
  33. OXYCODONE HYDROCHLORIDE. [Concomitant]
     Active Substance: OXYCODONE HYDROCHLORIDE
  34. LONGTEC [Concomitant]
     Active Substance: OXYCODONE HYDROCHLORIDE
  35. PERTUZUMAB. [Suspect]
     Active Substance: PERTUZUMAB
     Route: 042
     Dates: start: 20130711
  36. PERTUZUMAB. [Suspect]
     Active Substance: PERTUZUMAB
     Dosage: MOST RECENT DOSE PRIOR PRIOR TO SAE WORSENING OF CELLULITIS TO BOTH LEGS (THIGHS AND ANKLES), BUTTOC
     Route: 042
     Dates: end: 20130627
  37. DEXAMETHASONE. [Concomitant]
     Active Substance: DEXAMETHASONE
     Dates: end: 20130505
  38. DEXAMETHASONE. [Concomitant]
     Active Substance: DEXAMETHASONE
     Dates: start: 20130525, end: 20130612
  39. FUROSEMIDE. [Concomitant]
     Active Substance: FUROSEMIDE
     Dates: start: 20130619, end: 20130710
  40. METOCLOPRAMIDE. [Concomitant]
     Active Substance: METOCLOPRAMIDE
     Dosage: INDICATION: PRE?MEDICATION
     Dates: start: 20130516
  41. RANITIDINE. [Concomitant]
     Active Substance: RANITIDINE
     Dates: start: 20130523
  42. GENTAMYCIN [Concomitant]
     Active Substance: GENTAMICIN
     Dates: start: 20140311, end: 20140312
  43. OMEPRAZOLE. [Concomitant]
     Active Substance: OMEPRAZOLE
  44. AMOXICILLIN. [Concomitant]
     Active Substance: AMOXICILLIN

REACTIONS (2)
  - Infusion related reaction [Recovered/Resolved]
  - Cellulitis [Recovered/Resolved]

NARRATIVE: CASE EVENT DATE: 20130516
